FAERS Safety Report 12777857 (Version 1)
Quarter: 2016Q3

REPORT INFORMATION
  Report Type: Spontaneous
  Country: US (occurrence: US)
  Receive Date: 20160924
  Receipt Date: 20160924
  Transmission Date: 20161109
  Serious: No
  Sender: FDA-Public Use
  Company Number: US-JAZZ-2016-US-010710

PATIENT
  Sex: Female

DRUGS (39)
  1. NIACIN. [Concomitant]
     Active Substance: NIACIN
  2. NUVIGIL [Concomitant]
     Active Substance: ARMODAFINIL
  3. SCOPOLAMINE HBR [Concomitant]
     Active Substance: SCOPOLAMINE
  4. VALERIAN ROOT [Concomitant]
     Active Substance: VALERIAN
  5. HYDROCODONE/ACETAMINOPHEN [Concomitant]
     Active Substance: ACETAMINOPHEN\HYDROCODONE
  6. ALDACTONE [Concomitant]
     Active Substance: SPIRONOLACTONE
  7. ACETYL L-CARNITINE [Concomitant]
     Active Substance: ACETYLCARNITINE
  8. NIACIN ER [Concomitant]
     Active Substance: NIACIN
  9. REMICADE [Concomitant]
     Active Substance: INFLIXIMAB
  10. ZOFRAN ODT [Concomitant]
     Active Substance: ONDANSETRON HYDROCHLORIDE
  11. XYREM [Suspect]
     Active Substance: SODIUM OXYBATE
     Dosage: DOSE ADJUSTMENTS
     Route: 048
     Dates: start: 201404, end: 2015
  12. XYREM [Suspect]
     Active Substance: SODIUM OXYBATE
     Dosage: 2.75 G, FIRST DOSE
     Route: 048
     Dates: start: 201509
  13. PRED FORTE [Concomitant]
     Active Substance: PREDNISOLONE ACETATE
  14. REGLAN [Concomitant]
     Active Substance: METOCLOPRAMIDE HYDROCHLORIDE
  15. XYREM [Suspect]
     Active Substance: SODIUM OXYBATE
     Indication: CATAPLEXY
     Dosage: 2.5 G, BID
     Route: 048
     Dates: start: 201312, end: 201404
  16. FLOVENT [Concomitant]
     Active Substance: FLUTICASONE PROPIONATE
  17. METHYLPREDNISOLONE. [Concomitant]
     Active Substance: METHYLPREDNISOLONE
  18. RITALIN [Concomitant]
     Active Substance: METHYLPHENIDATE HYDROCHLORIDE
  19. AMINO ACID [Concomitant]
     Active Substance: AMINO ACIDS
  20. VITAMIN D [Concomitant]
     Active Substance: CHOLECALCIFEROL
  21. NEURONTIN [Concomitant]
     Active Substance: GABAPENTIN
  22. PEPCID [Concomitant]
     Active Substance: FAMOTIDINE
  23. XYREM [Suspect]
     Active Substance: SODIUM OXYBATE
     Dosage: 3.25 G, SECOND DOSE
     Route: 048
     Dates: start: 201509
  24. VERAPAMIL [Concomitant]
     Active Substance: VERAPAMIL HYDROCHLORIDE
  25. TRAMADOL HCL [Concomitant]
     Active Substance: TRAMADOL HYDROCHLORIDE
  26. FOLIC ACID. [Concomitant]
     Active Substance: FOLIC ACID
  27. METHOTREXATE. [Concomitant]
     Active Substance: METHOTREXATE
  28. PANLOR [Concomitant]
     Active Substance: ACETAMINOPHEN\CAFFEINE\DIHYDROCODEINE BITARTRATE
  29. VICODIN ES [Concomitant]
     Active Substance: ACETAMINOPHEN\HYDROCODONE BITARTRATE
  30. HYTRIN [Concomitant]
     Active Substance: TERAZOSIN HYDROCHLORIDE
  31. DYRENIUM [Concomitant]
     Active Substance: TRIAMTERENE
  32. OMNARIS [Concomitant]
     Active Substance: CICLESONIDE
  33. VITAMIN D3 [Concomitant]
     Active Substance: CHOLECALCIFEROL
  34. ZOFRAN [Concomitant]
     Active Substance: ONDANSETRON HYDROCHLORIDE
  35. XYREM [Suspect]
     Active Substance: SODIUM OXYBATE
     Indication: NARCOLEPSY
     Dosage: 2 G, BID
     Route: 048
     Dates: start: 201201
  36. VYVANSE [Concomitant]
     Active Substance: LISDEXAMFETAMINE DIMESYLATE
  37. METANX [Concomitant]
     Active Substance: LEVOMEFOLATE CALCIUM\METHYLCOBALAMIN\PYRIDOXAL PHOSPHATE ANHYDROUS
  38. PLAQUENIL [Concomitant]
     Active Substance: HYDROXYCHLOROQUINE SULFATE
  39. SINGULAIR [Concomitant]
     Active Substance: MONTELUKAST SODIUM

REACTIONS (1)
  - Migraine [Unknown]
